FAERS Safety Report 23234316 (Version 8)
Quarter: 2025Q1

REPORT INFORMATION
  Report Type: Report from Study
  Country: US (occurrence: US)
  Receive Date: 20231128
  Receipt Date: 20250213
  Transmission Date: 20250409
  Serious: Yes (Hospitalization, Other)
  Sender: SANDOZ
  Company Number: US-002147023-NVSC2021US281145

PATIENT
  Age: 43 Year
  Sex: Female
  Weight: 71.655 kg

DRUGS (42)
  1. ADEMPAS [Suspect]
     Active Substance: RIOCIGUAT
     Indication: Product used for unknown indication
     Route: 065
  2. OPSUMIT [Suspect]
     Active Substance: MACITENTAN
     Indication: Product used for unknown indication
     Route: 065
  3. TREPROSTINIL [Suspect]
     Active Substance: TREPROSTINIL
     Route: 042
  4. TREPROSTINIL [Suspect]
     Active Substance: TREPROSTINIL
     Route: 042
     Dates: start: 20211119
  5. TREPROSTINIL [Suspect]
     Active Substance: TREPROSTINIL
     Route: 042
  6. TREPROSTINIL [Suspect]
     Active Substance: TREPROSTINIL
     Indication: Pulmonary arterial hypertension
     Route: 042
     Dates: start: 20211119
  7. TREPROSTINIL [Suspect]
     Active Substance: TREPROSTINIL
     Route: 042
  8. TREPROSTINIL [Suspect]
     Active Substance: TREPROSTINIL
     Route: 042
  9. TREPROSTINIL [Suspect]
     Active Substance: TREPROSTINIL
     Route: 042
  10. TREPROSTINIL [Suspect]
     Active Substance: TREPROSTINIL
     Route: 042
  11. TREPROSTINIL [Suspect]
     Active Substance: TREPROSTINIL
     Route: 042
  12. TREPROSTINIL [Suspect]
     Active Substance: TREPROSTINIL
     Route: 042
     Dates: start: 20211119
  13. TREPROSTINIL [Suspect]
     Active Substance: TREPROSTINIL
     Route: 042
     Dates: start: 20211119
  14. WINREVAIR [Suspect]
     Active Substance: SOTATERCEPT-CSRK
     Indication: Product used for unknown indication
     Route: 065
  15. ACETAMINOPHEN [Concomitant]
     Active Substance: ACETAMINOPHEN
     Indication: Product used for unknown indication
     Route: 065
  16. AFRIN [Concomitant]
     Active Substance: OXYMETAZOLINE HYDROCHLORIDE
     Indication: Product used for unknown indication
     Route: 065
  17. ALBUTEROL SULFATE [Concomitant]
     Active Substance: ALBUTEROL SULFATE
     Indication: Product used for unknown indication
     Route: 065
  18. ALLEGRA ALLERGY [Concomitant]
     Active Substance: FEXOFENADINE HYDROCHLORIDE
     Indication: Product used for unknown indication
     Route: 065
  19. ALPRAZOLAM [Concomitant]
     Active Substance: ALPRAZOLAM
     Indication: Product used for unknown indication
     Route: 065
  20. CYCLOBENZAPRINE HYDROCHLORIDE [Concomitant]
     Active Substance: CYCLOBENZAPRINE HYDROCHLORIDE
     Indication: Product used for unknown indication
     Route: 065
  21. FIORICET [Concomitant]
     Active Substance: ACETAMINOPHEN\BUTALBITAL\CAFFEINE
     Indication: Product used for unknown indication
     Route: 065
  22. FLUTICASONE PROPIONATE [Concomitant]
     Active Substance: FLUTICASONE PROPIONATE
     Indication: Product used for unknown indication
     Route: 065
  23. FUROSEMIDE [Concomitant]
     Active Substance: FUROSEMIDE
     Indication: Product used for unknown indication
     Route: 065
  24. LEVOTHYROXINE SODIUM [Concomitant]
     Active Substance: LEVOTHYROXINE SODIUM
     Indication: Product used for unknown indication
     Route: 065
  25. LIPITOR [Concomitant]
     Active Substance: ATORVASTATIN CALCIUM
     Indication: Product used for unknown indication
     Route: 065
  26. LOPERAMIDE [Concomitant]
     Active Substance: LOPERAMIDE
     Indication: Product used for unknown indication
     Route: 065
  27. MAGNESIUM [Concomitant]
     Active Substance: MAGNESIUM
     Indication: Product used for unknown indication
     Route: 065
  28. MUCINEX [Concomitant]
     Active Substance: GUAIFENESIN
     Indication: Product used for unknown indication
     Route: 065
  29. VITAMINS [Concomitant]
     Active Substance: VITAMINS
     Indication: Product used for unknown indication
     Route: 065
  30. NASONEX [Concomitant]
     Active Substance: MOMETASONE FUROATE
     Indication: Product used for unknown indication
     Route: 065
  31. OMEPRAZOLE [Concomitant]
     Active Substance: OMEPRAZOLE
     Indication: Product used for unknown indication
     Route: 065
  32. ONDANSETRON HYDROCHLORIDE [Concomitant]
     Active Substance: ONDANSETRON HYDROCHLORIDE
     Indication: Product used for unknown indication
     Route: 065
  33. ORENITRAM [Concomitant]
     Active Substance: TREPROSTINIL
     Indication: Product used for unknown indication
     Route: 065
  34. OXYGEN [Concomitant]
     Active Substance: OXYGEN
     Indication: Product used for unknown indication
     Route: 065
  35. PREGABALIN [Concomitant]
     Active Substance: PREGABALIN
     Indication: Product used for unknown indication
     Route: 065
  36. SERTRALINE HYDROCHLORIDE [Concomitant]
     Active Substance: SERTRALINE HYDROCHLORIDE
     Indication: Product used for unknown indication
     Route: 065
  37. TESTOSTERONE [Concomitant]
     Active Substance: TESTOSTERONE
     Indication: Product used for unknown indication
     Route: 065
  38. TRAZODONE HCL [Concomitant]
     Active Substance: TRAZODONE HYDROCHLORIDE
     Indication: Product used for unknown indication
     Route: 065
  39. UPTRAVI [Concomitant]
     Active Substance: SELEXIPAG
     Indication: Product used for unknown indication
     Route: 065
  40. WARFARIN [Concomitant]
     Active Substance: WARFARIN
     Indication: Product used for unknown indication
     Route: 065
  41. WARFARIN SODIUM [Concomitant]
     Active Substance: WARFARIN SODIUM
     Indication: Product used for unknown indication
     Route: 065
  42. XANAX [Concomitant]
     Active Substance: ALPRAZOLAM
     Indication: Product used for unknown indication
     Route: 065

REACTIONS (31)
  - Pneumonia [Unknown]
  - Vascular device infection [Recovered/Resolved]
  - Atrial septal defect [Unknown]
  - Cellulitis [Recovered/Resolved]
  - Upper-airway cough syndrome [Not Recovered/Not Resolved]
  - Weight increased [Unknown]
  - Sinus congestion [Unknown]
  - Hypersensitivity [Unknown]
  - Wheezing [Unknown]
  - Weight decreased [Recovering/Resolving]
  - Fluid retention [Unknown]
  - Injection site discharge [Unknown]
  - COVID-19 [Unknown]
  - Injection site irritation [Unknown]
  - Ageusia [Unknown]
  - Flushing [Not Recovered/Not Resolved]
  - Sinusitis [Unknown]
  - Blister [Unknown]
  - Hyperhidrosis [Unknown]
  - Infusion site pain [Unknown]
  - Skin mass [Unknown]
  - Swelling [Unknown]
  - Diarrhoea [Unknown]
  - Dyspnoea [Unknown]
  - Pain in extremity [Not Recovered/Not Resolved]
  - Nausea [Recovering/Resolving]
  - Vomiting [Recovering/Resolving]
  - Decreased appetite [Unknown]
  - Fatigue [Unknown]
  - Headache [Unknown]
  - Pain in jaw [Unknown]

NARRATIVE: CASE EVENT DATE: 20220601
